FAERS Safety Report 4822019-9 (Version None)
Quarter: 2005Q4

REPORT INFORMATION
  Report Type: 
  Country: None (occurrence: None)
  Receive Date: 20051107
  Receipt Date: 20051026
  Transmission Date: 20060501
  Serious: Yes (Hospitalization)
  Sender: FDA-Public Use
  Company Number: US-JNJFOC-20051005961

PATIENT
  Age: 82 Year
  Sex: Female

DRUGS (17)
  1. TYLENOL (CAPLET) [Suspect]
     Route: 048
  2. TYLENOL (CAPLET) [Suspect]
     Indication: ARTHRITIS
     Route: 048
  3. FLUOXETINE [Concomitant]
  4. FLUOXETINE [Concomitant]
  5. ASPIRIN [Concomitant]
  6. ASCORBIC ACID [Concomitant]
  7. MULTI-VITAMIN [Concomitant]
  8. MULTI-VITAMIN [Concomitant]
  9. MULTI-VITAMIN [Concomitant]
  10. MULTI-VITAMIN [Concomitant]
  11. MULTI-VITAMIN [Concomitant]
  12. MULTI-VITAMIN [Concomitant]
  13. MULTI-VITAMIN [Concomitant]
  14. MULTI-VITAMIN [Concomitant]
  15. SINGULAIR [Concomitant]
  16. ANTIVERT [Concomitant]
  17. ANTIVERT [Concomitant]

REACTIONS (6)
  - CARDIAC PACEMAKER INSERTION [None]
  - DIZZINESS [None]
  - DYSPNOEA [None]
  - HEART RATE DECREASED [None]
  - PALPITATIONS [None]
  - VERTIGO [None]
